FAERS Safety Report 4624059-1 (Version None)
Quarter: 2005Q1

REPORT INFORMATION
  Report Type: 
  Country: None (occurrence: None)
  Receive Date: 20050329
  Receipt Date: 20050321
  Transmission Date: 20050727
  Serious: Yes (Hospitalization)
  Sender: FDA-Public Use
  Company Number: 2005015370

PATIENT
  Age: 73 Year
  Sex: Female
  Weight: 50 kg

DRUGS (10)
  1. TAHOR (ATORVASTATIN) [Suspect]
     Indication: ILL-DEFINED DISORDER
     Dosage: 20 MG (1 IN 1 D), ORAL
     Route: 048
     Dates: start: 20041215, end: 20041229
  2. FUROSEMIDE [Suspect]
     Indication: ILL-DEFINED DISORDER
     Dosage: 20 MG ( 1 IN 1 D), ORAL
     Route: 048
     Dates: start: 20041212, end: 20041222
  3. ALLOPURINOL [Suspect]
     Indication: GOUT
     Dosage: 100 MG (1 IN 1 D), ORAL
     Route: 048
     Dates: start: 20041217, end: 20041228
  4. DICLOFENAC SODIUM [Suspect]
     Indication: GOUTY ARTHRITIS
     Dosage: 180 MG (1 IN 2 WK), TOPICAL
     Route: 061
     Dates: start: 20041212, end: 20041228
  5. COLCHICINE (COLCHICINE) [Concomitant]
  6. RAMIPRIL [Concomitant]
  7. ACETYLSALICYLIC ACID SRT [Concomitant]
  8. INSULIN GLARGINE (INSULIN GLARGINE) [Concomitant]
  9. ACETAMINOPHEN [Concomitant]
  10. INSULIN HUMAN (INSULIN HUMAN) [Concomitant]

REACTIONS (4)
  - ACUTE GENERALISED EXANTHEMATOUS PUSTULOSIS [None]
  - GAMMA-GLUTAMYLTRANSFERASE INCREASED [None]
  - NEUTROPHIL COUNT DECREASED [None]
  - WHITE BLOOD CELL COUNT INCREASED [None]
